FAERS Safety Report 7271671-X (Version None)
Quarter: 2011Q1

REPORT INFORMATION
  Report Type: 
  Country: None (occurrence: None)
  Receive Date: 20110203
  Receipt Date: 20110125
  Transmission Date: 20110831
  Serious: Yes (Hospitalization)
  Sender: FDA-Public Use
  Company Number: NL-JNJFOC-20110106559

PATIENT
  Age: 94 Year
  Sex: Female

DRUGS (1)
  1. HALDOL [Suspect]
     Indication: DELIRIUM
     Route: 065

REACTIONS (4)
  - DEHYDRATION [None]
  - DYSPHAGIA [None]
  - SPEECH DISORDER [None]
  - APHAGIA [None]
